FAERS Safety Report 21217199 (Version 1)
Quarter: 2022Q3

REPORT INFORMATION
  Report Type: Spontaneous
  Country: US (occurrence: None)
  Receive Date: 20220816
  Receipt Date: 20220816
  Transmission Date: 20221026
  Serious: Yes (Other)
  Sender: FDA-Public Use
  Company Number: None

PATIENT
  Age: 45 Year
  Sex: Female
  Weight: 77.11 kg

DRUGS (1)
  1. KYLEENA [Suspect]
     Active Substance: LEVONORGESTREL

REACTIONS (9)
  - Complication associated with device [None]
  - Depression [None]
  - Acne [None]
  - Hair growth abnormal [None]
  - Weight increased [None]
  - Feeling abnormal [None]
  - Anger [None]
  - Partner stress [None]
  - Quality of life decreased [None]

NARRATIVE: CASE EVENT DATE: 20190519
